FAERS Safety Report 8362122-2 (Version None)
Quarter: 2012Q2

REPORT INFORMATION
  Report Type: 
  Country: None (occurrence: None)
  Receive Date: 20120515
  Receipt Date: 20120508
  Transmission Date: 20120825
  Serious: Yes (Other)
  Sender: FDA-Public Use
  Company Number: PHHY2012GB039483

PATIENT
  Age: 34 Year
  Sex: Male

DRUGS (1)
  1. BROMOCRIPTINE MESYLATE [Suspect]

REACTIONS (1)
  - NEOPLASM PROGRESSION [None]
